FAERS Safety Report 8867692 (Version 1)
Quarter: 2012Q4

REPORT INFORMATION
  Report Type: 
  Country: US (occurrence: US)
  Receive Date: 20121025
  Receipt Date: 20121025
  Transmission Date: 20130627
  Serious: No
  Sender: FDA-Public Use
  Company Number: US-AMGEN-USASP2012018234

PATIENT
  Sex: Female
  Weight: 65.76 kg

DRUGS (18)
  1. ENBREL [Suspect]
     Indication: PRODUCT USED FOR UNKNOWN INDICATION
     Dosage: 50 mg, qwk
     Route: 058
  2. CITALOPRAM [Concomitant]
     Dosage: 10 mg, UNK
  3. TRAVATAN Z [Concomitant]
     Dosage: UNK
  4. OCUVITE                            /01053801/ [Concomitant]
     Dosage: UNK
  5. ASPIRIN [Concomitant]
     Dosage: 81 mg, UNK
  6. TRIAMTEREEN/HYDROCHLOOTTHIAZIDE [Concomitant]
     Dosage: UNK
  7. DILTIAZEM [Concomitant]
     Dosage: 120 mg, UNK
  8. SIMVASTATIN [Concomitant]
     Dosage: 10 mg, UNK
  9. FLOVENT [Concomitant]
     Dosage: 110 mug, UNK
  10. SINGULAIR [Concomitant]
     Dosage: 4 mg, UNK
  11. FEXOFENADINE [Concomitant]
     Dosage: 30 mg, UNK
  12. FOLIC ACID [Concomitant]
     Dosage: UNK
  13. METHOTREXATE [Concomitant]
     Dosage: 2.5 mg, UNK
  14. CALCIUM W/VITAMIN D                /00188401/ [Concomitant]
     Dosage: 600 mg, UNK
  15. VITAMIN D /00107901/ [Concomitant]
     Dosage: 1000 IU, UNK
  16. FISH OIL [Concomitant]
     Dosage: 1000 mg, UNK
  17. ALBUTEROL                          /00139501/ [Concomitant]
     Dosage: 0.5 %, UNK
  18. ESTRADIOL [Concomitant]
     Dosage: 0.025 mg, UNK

REACTIONS (1)
  - Nasopharyngitis [Unknown]
